FAERS Safety Report 4551683-7 (Version None)
Quarter: 2005Q1

REPORT INFORMATION
  Report Type: 
  Country: None (occurrence: None)
  Receive Date: 20050111
  Receipt Date: 20041123
  Transmission Date: 20050727
  Serious: Yes (Hospitalization)
  Sender: FDA-Public Use
  Company Number: 2004240217US

PATIENT
  Age: 68 Year
  Sex: Female
  Weight: 83 kg

DRUGS (17)
  1. CELEBREX [Suspect]
     Indication: BILE DUCT CANCER
     Dosage: SEE IMAGE
     Route: 048
     Dates: start: 20040412
  2. CELEBREX [Suspect]
     Indication: BILE DUCT CANCER
     Dosage: SEE IMAGE
     Route: 048
     Dates: start: 20040902
  3. CAMPTOSAR [Suspect]
     Indication: BILE DUCT CANCER
     Dosage: 50 MG/M2 (CYCLICAL), INTRAVENOUS
     Route: 042
     Dates: start: 20040412
  4. GEMCITABINE HYDROCHLORIDE (GEMCITABINE HYDROCHLORIDE) [Suspect]
     Indication: BILE DUCT CANCER
     Dosage: SEE IMAGE
     Route: 042
     Dates: start: 20040412
  5. GEMCITABINE HYDROCHLORIDE (GEMCITABINE HYDROCHLORIDE) [Suspect]
     Indication: BILE DUCT CANCER
     Dosage: SEE IMAGE
     Route: 042
     Dates: start: 20040902
  6. CEPHALEXIN MONOHYDRATE [Concomitant]
  7. SENNA (SENNA) [Concomitant]
  8. DOCUSATE (DOCUSATE) [Concomitant]
  9. CLONIDINE [Concomitant]
  10. METOCLOPRAMIDE [Concomitant]
  11. MORPHINE SULFATE [Concomitant]
  12. OXYCODONE HCL [Concomitant]
  13. MIRTAZAPINE [Concomitant]
  14. MORPHINE SULFATE [Concomitant]
  15. MEGACE [Concomitant]
  16. LOPERAMIDE HYDROCHLORIDE [Concomitant]
  17. WARFARIN SODIUM [Concomitant]

REACTIONS (33)
  - ACTIVATED PARTIAL THROMBOPLASTIN TIME PROLONGED [None]
  - ASPARTATE AMINOTRANSFERASE INCREASED [None]
  - BACTERAEMIA [None]
  - BLOOD ALKALINE PHOSPHATASE INCREASED [None]
  - BLOOD BICARBONATE DECREASED [None]
  - BLOOD BILIRUBIN INCREASED [None]
  - BLOOD CALCIUM DECREASED [None]
  - BLOOD URINE PRESENT [None]
  - C-REACTIVE PROTEIN INCREASED [None]
  - CATHETER RELATED COMPLICATION [None]
  - CATHETER RELATED INFECTION [None]
  - CELLULITIS [None]
  - CHILLS [None]
  - CONFUSIONAL STATE [None]
  - DEHYDRATION [None]
  - FATIGUE [None]
  - HYPERKALAEMIA [None]
  - INTERNATIONAL NORMALISED RATIO DECREASED [None]
  - KLEBSIELLA INFECTION [None]
  - LABORATORY TEST ABNORMAL [None]
  - MEAN CELL VOLUME INCREASED [None]
  - OEDEMA PERIPHERAL [None]
  - OXYGEN SATURATION DECREASED [None]
  - PANCYTOPENIA [None]
  - PROTEIN TOTAL DECREASED [None]
  - PROTEIN URINE [None]
  - PYREXIA [None]
  - RASH [None]
  - RENAL FAILURE ACUTE [None]
  - SOMNOLENCE [None]
  - SWELLING FACE [None]
  - TENDERNESS [None]
  - WHITE BLOOD CELL COUNT INCREASED [None]
